FAERS Safety Report 9870369 (Version 1)
Quarter: 2014Q1

REPORT INFORMATION
  Report Type: Spontaneous
  Country: US (occurrence: None)
  Receive Date: 20140203
  Receipt Date: 20140203
  Transmission Date: 20141002
  Serious: Yes (Other)
  Sender: FDA-Public Use
  Company Number: 001657457A

PATIENT
  Age: 42 Year
  Sex: Female

DRUGS (3)
  1. MEANINGFUL BEAUTY ANTIOXDANT DAY CREME WITH SPF 20 [Suspect]
     Dosage: ONCE DERMAL
     Dates: start: 20130822
  2. MEANINGFUL BEAUTY CINDY CRAWFORD SKIN BRIGHTENING DECOLLETE AND NECK TREATMENT SPF 15 [Suspect]
     Dosage: ONCE DERMAL
     Dates: start: 20130822
  3. PREDNISONE [Concomitant]

REACTIONS (5)
  - Erythema [None]
  - Swelling face [None]
  - Urticaria [None]
  - Throat tightness [None]
  - Scar [None]
